FAERS Safety Report 10373869 (Version 1)
Quarter: 2014Q1

REPORT INFORMATION
  Report Type: Spontaneous
  Country: US (occurrence: None)
  Receive Date: 20140306
  Receipt Date: 20140306
  Transmission Date: 20141002
  Serious: Yes (Other)
  Sender: FDA-Public Use
  Company Number: 163-21880-13105773

PATIENT
  Age: 80 Year
  Sex: Female
  Weight: 62.6 kg

DRUGS (2)
  1. REVLIMID [Suspect]
     Indication: MYELODYSPLASTIC SYNDROME
     Dosage: 21 IN 21 D
     Route: 048
     Dates: start: 201112, end: 20120423
  2. ARANESP (DARBEPOETIN ALFA) (UNKNOWN) [Concomitant]

REACTIONS (5)
  - Haemoglobin decreased [None]
  - Platelet count decreased [None]
  - Fatigue [None]
  - Rash generalised [None]
  - Pruritus [None]
